FAERS Safety Report 5654799-7 (Version None)
Quarter: 2008Q1

REPORT INFORMATION
  Report Type: 
  Country: None (occurrence: None)
  Receive Date: 20080307
  Receipt Date: 20070720
  Transmission Date: 20080703
  Serious: No
  Sender: FDA-Public Use
  Company Number: A0665394A

PATIENT
  Age: 55 Year
  Sex: Female

DRUGS (3)
  1. REQUIP [Suspect]
     Indication: RESTLESS LEGS SYNDROME
     Dosage: 4MG PER DAY
     Route: 048
     Dates: start: 20070717, end: 20070719
  2. ROZEREM [Concomitant]
  3. ESTROGEN [Concomitant]

REACTIONS (2)
  - MEDICATION ERROR [None]
  - NAUSEA [None]
